FAERS Safety Report 10248186 (Version 2)
Quarter: 2014Q2

REPORT INFORMATION
  Report Type: Spontaneous
  Country: ES (occurrence: ES)
  Receive Date: 20140620
  Receipt Date: 20140626
  Transmission Date: 20141212
  Serious: Yes (Death)
  Sender: FDA-Public Use
  Company Number: PHHY2014ES073158

PATIENT
  Age: 40 Year
  Sex: Female

DRUGS (2)
  1. ESIDREX [Suspect]
     Indication: HYPERTENSION
     Dosage: 25 MG, QD
     Route: 048
     Dates: end: 20130904
  2. DROSPIRENONE+ETHINYLESTRADIOL [Suspect]
     Dosage: 63 MG, QMO
     Route: 048
     Dates: start: 20111211, end: 20130904

REACTIONS (2)
  - Hypoxic-ischaemic encephalopathy [Fatal]
  - Cardiac arrest [Fatal]
